FAERS Safety Report 9463939 (Version 1)
Quarter: 2013Q3

REPORT INFORMATION
  Report Type: Spontaneous
  Country: US (occurrence: US)
  Receive Date: 20130819
  Receipt Date: 20130819
  Transmission Date: 20140515
  Serious: Yes (Hospitalization, Other)
  Sender: FDA-Public Use
  Company Number: US-COVIDIEN/TYCO HEALTHCARE/MALLINCKRODT-T201304129

PATIENT
  Age: 43 Year
  Sex: Female

DRUGS (2)
  1. METHADOSE [Suspect]
     Indication: PRODUCT USED FOR UNKNOWN INDICATION
     Dosage: UNK
     Route: 065
  2. DIAZEPAM [Suspect]
     Indication: PRODUCT USED FOR UNKNOWN INDICATION
     Dosage: 5 MG (40 TO 50 TABLETS), SINGLE

REACTIONS (12)
  - Suicide attempt [Recovered/Resolved]
  - Overdose [Recovered/Resolved]
  - Leukoencephalopathy [Recovered/Resolved]
  - Unresponsive to stimuli [Recovered/Resolved]
  - Respiratory rate decreased [Recovered/Resolved]
  - Confusional state [Recovered/Resolved]
  - Leukocytosis [Recovered/Resolved]
  - Pneumonia aspiration [Recovered/Resolved]
  - Incontinence [Recovered/Resolved]
  - Social avoidant behaviour [Recovered/Resolved]
  - Lethargy [Recovered/Resolved]
  - Poor personal hygiene [Recovered/Resolved]
